FAERS Safety Report 9380051 (Version 2)
Quarter: 2013Q3

REPORT INFORMATION
  Report Type: Spontaneous
  Country: CA (occurrence: None)
  Receive Date: 20130628
  Receipt Date: 20130726
  Transmission Date: 20140515
  Serious: Yes (Hospitalization)
  Sender: FDA-Public Use
  Company Number: KAD201306-000746

PATIENT
  Age: 35 Year
  Sex: Male
  Weight: 65 kg

DRUGS (4)
  1. AMPHOTERICIN B [Suspect]
     Indication: BLASTOMYCOSIS
     Dosage: INFUSION
     Route: 042
  2. VORICONAZOLE [Suspect]
     Dosage: 400 MG (6 MG/KG) EVERY 12 H, INTRAVENOUS
  3. LIPOSOMAL AMPHOTERICIN B [Suspect]
     Dosage: INFUSION
     Route: 042
  4. ACETAMINOPHEN [Concomitant]

REACTIONS (15)
  - Dehydration [None]
  - Hypernatraemia [None]
  - Blood creatinine increased [None]
  - Pneumonia [None]
  - Rash [None]
  - Blood potassium decreased [None]
  - Blastomycosis [None]
  - Condition aggravated [None]
  - Pleural effusion [None]
  - Treatment failure [None]
  - Off label use [None]
  - Hypoxia [None]
  - Renal disorder [None]
  - Pneumonia pseudomonal [None]
  - Dyspnoea [None]
